FAERS Safety Report 7403814-9 (Version None)
Quarter: 2011Q1

REPORT INFORMATION
  Report Type: 
  Country: None (occurrence: None)
  Receive Date: 20110330
  Receipt Date: 20110315
  Transmission Date: 20110831
  Serious: Yes (Hospitalization)
  Sender: FDA-Public Use
  Company Number: 2010US000081

PATIENT
  Age: 51 Year
  Sex: Female

DRUGS (1)
  1. ENTEREG [Suspect]
     Indication: POSTOPERATIVE ILEUS
     Dosage: 12 MG; PO
     Route: 048
     Dates: start: 20100920, end: 20100925

REACTIONS (5)
  - LIVER OPERATION [None]
  - HYPOGLYCAEMIA [None]
  - HYPOTENSION [None]
  - MENTAL DISORDER DUE TO A GENERAL MEDICAL CONDITION [None]
  - BLOOD PRESSURE INADEQUATELY CONTROLLED [None]
